FAERS Safety Report 9882380 (Version 3)
Quarter: 2014Q2

REPORT INFORMATION
  Report Type: Report from Study
  Country: JP (occurrence: JP)
  Receive Date: 20140207
  Receipt Date: 20140401
  Transmission Date: 20141212
  Serious: Yes (Hospitalization)
  Sender: FDA-Public Use
  Company Number: JP-GLAXOSMITHKLINE-B0966412A

PATIENT
  Age: 80 Year
  Sex: Female
  Weight: 52 kg

DRUGS (9)
  1. RELVAR ELLIPTA (FLUTICASONE FUROATE/VILANTEROL) [Suspect]
     Indication: ASTHMA
     Dosage: 200MCG PER DAY
     Route: 055
     Dates: start: 20140110, end: 20140202
  2. UNIPHYL LA [Concomitant]
     Indication: ASTHMA
     Route: 048
  3. SINGULAIR [Concomitant]
     Indication: ASTHMA
     Route: 048
  4. SPIRIVA [Concomitant]
     Route: 055
  5. NEXIUM [Concomitant]
     Route: 048
  6. MAGLAX [Concomitant]
     Route: 048
  7. HALCION [Concomitant]
     Route: 048
  8. CONSTAN [Concomitant]
     Route: 048
  9. SULTANOL [Concomitant]
     Indication: ASTHMA
     Route: 055

REACTIONS (1)
  - Acute myocardial infarction [Recovering/Resolving]
